FAERS Safety Report 25994438 (Version 1)
Quarter: 2025Q4

REPORT INFORMATION
  Report Type: Report from Study
  Country: US (occurrence: US)
  Receive Date: 20251104
  Receipt Date: 20251104
  Transmission Date: 20260117
  Serious: Yes (Other)
  Sender: ALEXION PHARMACEUTICALS
  Company Number: 202510NAM031274US

PATIENT
  Sex: Female

DRUGS (3)
  1. OLAPARIB [Suspect]
     Active Substance: OLAPARIB
     Indication: Retroperitoneal cancer
     Dosage: 200 MILLIGRAM, BID
     Dates: start: 202211
  2. OLAPARIB [Suspect]
     Active Substance: OLAPARIB
     Indication: Malignant peritoneal neoplasm
  3. OLAPARIB [Suspect]
     Active Substance: OLAPARIB
     Indication: Breast cancer female

REACTIONS (9)
  - Haemolytic anaemia [Unknown]
  - Hepatitis [Unknown]
  - Alopecia [Unknown]
  - Asthenia [Unknown]
  - Apathy [Unknown]
  - Bone pain [Unknown]
  - Haemochromatosis [Unknown]
  - Inflammation [Unknown]
  - Road traffic accident [Unknown]
